FAERS Safety Report 16023492 (Version 1)
Quarter: 2019Q1

REPORT INFORMATION
  Report Type: Spontaneous
  Country: DE (occurrence: DE)
  Receive Date: 20190301
  Receipt Date: 20190301
  Transmission Date: 20190418
  Serious: Yes (Other)
  Sender: FDA-Public Use
  Company Number: DE-UCBSA-2019008133

PATIENT
  Sex: Female

DRUGS (2)
  1. VIMPAT [Suspect]
     Active Substance: LACOSAMIDE
     Indication: EPILEPSY
     Dosage: 50 MG
  2. VIMPAT [Suspect]
     Active Substance: LACOSAMIDE
     Dosage: 100MG

REACTIONS (2)
  - Seizure [Unknown]
  - Unresponsive to stimuli [Unknown]
